FAERS Safety Report 9637720 (Version 2)
Quarter: 2013Q4

REPORT INFORMATION
  Report Type: Spontaneous
  Country: MY (occurrence: MY)
  Receive Date: 20131022
  Receipt Date: 20131022
  Transmission Date: 20140711
  Serious: Yes (Other)
  Sender: FDA-Public Use
  Company Number: MY-PFIZER INC-2013285631

PATIENT
  Age: 2 Decade
  Sex: Female

DRUGS (1)
  1. LOETTE 21 [Suspect]
     Dosage: UNK
     Dates: start: 201309

REACTIONS (4)
  - Ocular icterus [Recovered/Resolved]
  - Abdominal pain upper [Recovered/Resolved]
  - Muscle spasms [Recovered/Resolved]
  - Rash [Not Recovered/Not Resolved]
